FAERS Safety Report 15993723 (Version 1)
Quarter: 2019Q1

REPORT INFORMATION
  Report Type: Spontaneous
  Country: US (occurrence: US)
  Receive Date: 20190222
  Receipt Date: 20190222
  Transmission Date: 20190418
  Serious: Yes (Life-Threatening)
  Sender: FDA-Public Use
  Company Number: US-SA-2019SA047160

PATIENT
  Age: 64 Year
  Sex: Female

DRUGS (2)
  1. ASPIRIN (E.C.) [Concomitant]
     Active Substance: ASPIRIN
     Route: 065
  2. LANTUS SOLOSTAR [Suspect]
     Active Substance: INSULIN GLARGINE
     Indication: TYPE 2 DIABETES MELLITUS
     Dosage: 50 U, QD
     Route: 065

REACTIONS (3)
  - Myocardial infarction [Unknown]
  - Incorrect dose administered by device [Unknown]
  - Device operational issue [Unknown]
